FAERS Safety Report 5103750-7 (Version None)
Quarter: 2006Q3

REPORT INFORMATION
  Report Type: 
  Country: None (occurrence: None)
  Receive Date: 20060913
  Receipt Date: 20060907
  Transmission Date: 20061208
  Serious: Yes (Hospitalization)
  Sender: FDA-Public Use
  Company Number: 2006AP04167

PATIENT
  Age: 70 Year
  Sex: Male

DRUGS (4)
  1. NEXIUM [Suspect]
     Route: 048
  2. NEXIUM [Suspect]
     Route: 048
  3. TEMAZE [Concomitant]
  4. MOVALIS [Concomitant]

REACTIONS (2)
  - BACK PAIN [None]
  - PERFORATED ULCER [None]
